FAERS Safety Report 18479622 (Version 1)
Quarter: 2020Q4

REPORT INFORMATION
  Report Type: Spontaneous
  Country: DE (occurrence: DE)
  Receive Date: 20201109
  Receipt Date: 20201109
  Transmission Date: 20210114
  Serious: Yes (Other)
  Sender: FDA-Public Use
  Company Number: DE-TEVA-2020-DE-1845192

PATIENT
  Age: 33 Year
  Sex: Male
  Weight: 83 kg

DRUGS (10)
  1. PROPOFOL. [Suspect]
     Active Substance: PROPOFOL
     Indication: TONSILLECTOMY
     Dosage: 300 MG
     Route: 065
     Dates: start: 20190820, end: 20190820
  2. HALDOL [Suspect]
     Active Substance: HALOPERIDOL
     Indication: SURGERY
     Route: 065
  3. PIRITRAMIDE [Concomitant]
     Active Substance: PIRITRAMIDE
     Indication: SURGERY
     Dosage: 7.5 MG
  4. DEXAMETHASONE. [Concomitant]
     Active Substance: DEXAMETHASONE
     Indication: SURGERY
     Dosage: 8 MG
  5. SEVOFLURANE. [Concomitant]
     Active Substance: SEVOFLURANE
     Indication: SURGERY
     Dosage: 2.3 PERCENT
  6. ONDANSETRON [Concomitant]
     Active Substance: ONDANSETRON
     Indication: SURGERY
     Dosage: 4 MG
  7. NOVAMINSULFON [Concomitant]
     Active Substance: METAMIZOLE
     Indication: SURGERY
     Dosage: 2500 MG
  8. FENTANYL. [Concomitant]
     Active Substance: FENTANYL
     Indication: SURGERY
     Dosage: 0.2 MG
  9. MIVACRON [Suspect]
     Active Substance: MIVACURIUM CHLORIDE
     Indication: SURGERY
     Dosage: 14 MG
     Route: 065
  10. DICLAC [DICLOFENAC SODIUM] [Suspect]
     Active Substance: DICLOFENAC SODIUM
     Indication: PAIN
     Dosage: 100 MG
     Route: 065
     Dates: start: 20190818, end: 20190902

REACTIONS (17)
  - Flatulence [Not Recovered/Not Resolved]
  - Dizziness [Not Recovered/Not Resolved]
  - Heart rate increased [Not Recovered/Not Resolved]
  - Oropharyngeal discomfort [Not Recovered/Not Resolved]
  - Blood pressure measurement [Not Recovered/Not Resolved]
  - Speech disorder [Not Recovered/Not Resolved]
  - Weight bearing difficulty [Not Recovered/Not Resolved]
  - Vision blurred [Not Recovered/Not Resolved]
  - Chest pain [Not Recovered/Not Resolved]
  - Somnolence [Not Recovered/Not Resolved]
  - Oropharyngeal pain [Not Recovered/Not Resolved]
  - Hyperventilation [Not Recovered/Not Resolved]
  - Dyspnoea [Not Recovered/Not Resolved]
  - Impaired work ability [Not Recovered/Not Resolved]
  - Visual impairment [Not Recovered/Not Resolved]
  - Asthenia [Not Recovered/Not Resolved]
  - Chest discomfort [Not Recovered/Not Resolved]

NARRATIVE: CASE EVENT DATE: 20190818
